FAERS Safety Report 9339825 (Version 2)
Quarter: 2013Q2

REPORT INFORMATION
  Report Type: Spontaneous
  Country: GB (occurrence: None)
  Receive Date: 20130605
  Receipt Date: 20130617
  Transmission Date: 20140414
  Serious: Yes (Hospitalization)
  Sender: FDA-Public Use
  Company Number: FK201301880

PATIENT
  Age: 71 Year
  Sex: 0

DRUGS (3)
  1. IRINOTECAN [Suspect]
     Indication: PRODUCT USED FOR UNKNOWN INDICATION
     Dosage: INTRAVENOUS (NOT OTHERWISE SPECIFIED)
     Route: 042
     Dates: start: 20130516
  2. GLUCOSE [Suspect]
  3. CALCIUM LEVOFOLINATE [Suspect]

REACTIONS (5)
  - Malaise [None]
  - Chills [None]
  - Body temperature increased [None]
  - Hypotension [None]
  - Infection [None]
